FAERS Safety Report 6272156-X (Version None)
Quarter: 2009Q3

REPORT INFORMATION
  Report Type: 
  Country: None (occurrence: None)
  Receive Date: 20090715
  Receipt Date: 20090702
  Transmission Date: 20100115
  Serious: Yes (Hospitalization)
  Sender: FDA-Public Use
  Company Number: 2009AL002836

PATIENT
  Age: 46 Year
  Sex: Male

DRUGS (27)
  1. DIGOXIN [Suspect]
     Dosage: 0.25MG, DAILY, PO
     Route: 048
     Dates: start: 20070511
  2. DEMADEX [Concomitant]
  3. MAGNESIUM OXIDE [Concomitant]
  4. ALLOPURINOL [Concomitant]
  5. SYNTHROID [Concomitant]
  6. BYETTA [Concomitant]
  7. AMIODARONE [Concomitant]
  8. SPIRONOLACTONE [Concomitant]
  9. XENICAL [Concomitant]
  10. AMBIEN [Concomitant]
  11. SINGULAIR [Concomitant]
  12. LISINOPRIL [Concomitant]
  13. COREG [Concomitant]
  14. THYROLAR [Concomitant]
  15. ORLISTAT [Concomitant]
  16. TORSEMIDE [Concomitant]
  17. LUNESTA [Concomitant]
  18. XOPENEX [Concomitant]
  19. ADVAIR HFA [Concomitant]
  20. WARFARIN SODIUM [Concomitant]
  21. ZYRTEC [Concomitant]
  22. FUROSEMIDE [Concomitant]
  23. LEVAQUIN [Concomitant]
  24. HYDROCODONE [Concomitant]
  25. LEVOTHYROXINE SODIUM [Concomitant]
  26. LUNESTA [Concomitant]
  27. ADVAIR HFA [Concomitant]

REACTIONS (3)
  - CHOLECYSTITIS ACUTE [None]
  - ECONOMIC PROBLEM [None]
  - MULTIPLE INJURIES [None]
